FAERS Safety Report 6630611-4 (Version None)
Quarter: 2010Q1

REPORT INFORMATION
  Report Type: 
  Country: None (occurrence: None)
  Receive Date: 20100311
  Receipt Date: 20090522
  Transmission Date: 20100710
  Serious: No
  Sender: FDA-Public Use
  Company Number: US-BIOGENIDEC-2009BI015745

PATIENT
  Sex: Male

DRUGS (3)
  1. AVONEX [Suspect]
     Indication: MULTIPLE SCLEROSIS
     Route: 030
     Dates: start: 20090519
  2. BACLOFEN [Concomitant]
     Indication: MUSCLE SPASMS
  3. VICODIN [Concomitant]
     Indication: BACK PAIN

REACTIONS (7)
  - ABASIA [None]
  - CRYING [None]
  - INFLUENZA LIKE ILLNESS [None]
  - MEMORY IMPAIRMENT [None]
  - MUSCLE SPASMS [None]
  - TREMOR [None]
  - VISUAL IMPAIRMENT [None]
